FAERS Safety Report 20983905 (Version 4)
Quarter: 2023Q1

REPORT INFORMATION
  Report Type: Spontaneous
  Country: AU (occurrence: AU)
  Receive Date: 20220621
  Receipt Date: 20230301
  Transmission Date: 20230418
  Serious: Yes (Life-Threatening, Hospitalization, Other)
  Sender: FDA-Public Use
  Company Number: AU-BRISTOL-MYERS SQUIBB COMPANY-2022-061294

PATIENT
  Age: 65 Year
  Sex: Female
  Weight: 81 kg

DRUGS (22)
  1. AZACITIDINE [Suspect]
     Active Substance: AZACITIDINE
     Indication: Acute myeloid leukaemia
     Dosage: 149 MILLIGRAM, QD
     Route: 042
     Dates: start: 20220131
  2. AZACITIDINE [Suspect]
     Active Substance: AZACITIDINE
     Dosage: 149 MILLIGRAM, QD
     Route: 042
     Dates: start: 20220304
  3. BGB-11417 [Suspect]
     Active Substance: BGB-11417
     Indication: Acute myeloid leukaemia
     Dosage: 5 MILLIGRAM, QD
     Route: 048
     Dates: start: 20220131
  4. BGB-11417 [Suspect]
     Active Substance: BGB-11417
     Dosage: 40 MILLIGRAM, QD
     Route: 048
     Dates: start: 20220301
  5. VALACYCLOVIR HYDROCHLORIDE [Concomitant]
     Active Substance: VALACYCLOVIR HYDROCHLORIDE
     Indication: Antiviral prophylaxis
     Dosage: UNK
     Route: 048
     Dates: start: 20220131
  6. METRONIDAZOLE [Concomitant]
     Active Substance: METRONIDAZOLE
     Indication: Antibiotic therapy
     Dosage: UNK
     Route: 042
     Dates: start: 20220308, end: 20220310
  7. METRONIDAZOLE [Concomitant]
     Active Substance: METRONIDAZOLE
     Indication: Product used for unknown indication
  8. ALLOPURINOL SODIUM [Concomitant]
     Active Substance: ALLOPURINOL SODIUM
     Indication: Prophylaxis
     Dosage: UNK
     Route: 048
     Dates: start: 20220201
  9. TEMAZEPAM [Concomitant]
     Active Substance: TEMAZEPAM
     Indication: Prophylaxis
     Dosage: UNK
     Route: 048
     Dates: start: 20220120
  10. BENZOCAINE\BISMUTH SUBGALLATE\EPHEDRINE\EPINEPHRINE\ZINC OXIDE [Concomitant]
     Active Substance: BENZOCAINE\BISMUTH SUBGALLATE\EPHEDRINE\EPINEPHRINE\ZINC OXIDE
     Indication: Haemorrhoids
     Route: 061
     Dates: start: 20220103
  11. DOCUSATE SODIUM\SENNOSIDES A AND B [Concomitant]
     Active Substance: DOCUSATE SODIUM\SENNOSIDES A AND B
     Indication: Constipation
     Route: 048
     Dates: start: 20220131
  12. DOCUSATE SODIUM\SENNOSIDES A AND B [Concomitant]
     Active Substance: DOCUSATE SODIUM\SENNOSIDES A AND B
     Dates: start: 20220131
  13. ACETAMINOPHEN [Concomitant]
     Active Substance: ACETAMINOPHEN
     Indication: Skin reaction
     Dates: start: 20220201
  14. ACETAMINOPHEN [Concomitant]
     Active Substance: ACETAMINOPHEN
     Indication: Proctalgia
  15. ACETAMINOPHEN [Concomitant]
     Active Substance: ACETAMINOPHEN
     Indication: Myocarditis
  16. POSACONAZOLE [Concomitant]
     Active Substance: POSACONAZOLE
     Indication: Antifungal prophylaxis
     Dates: start: 20220210
  17. POSACONAZOLE [Concomitant]
     Active Substance: POSACONAZOLE
     Dates: start: 20220211, end: 20220221
  18. TRANEXAMIC ACID [Concomitant]
     Active Substance: TRANEXAMIC ACID
     Indication: Haemorrhage prophylaxis
     Dates: start: 20220131
  19. FRAMYCETIN SULFATE [Concomitant]
     Active Substance: FRAMYCETIN SULFATE
     Indication: Product used for unknown indication
  20. BENZOCAINE [Concomitant]
     Active Substance: BENZOCAINE
     Indication: Product used for unknown indication
  21. BISMUTH SUBGALLATE [Concomitant]
     Active Substance: BISMUTH SUBGALLATE
     Indication: Product used for unknown indication
  22. EPHEDRINE [EPHEDRINE HYDROCHLORIDE] [Concomitant]
     Indication: Product used for unknown indication

REACTIONS (3)
  - Neutropenic sepsis [Recovered/Resolved]
  - Proctalgia [Recovered/Resolved]
  - Prescribed overdose [Unknown]

NARRATIVE: CASE EVENT DATE: 20220131
